FAERS Safety Report 8359784-2 (Version None)
Quarter: 2012Q2

REPORT INFORMATION
  Report Type: 
  Country: None (occurrence: None)
  Receive Date: 20120515
  Receipt Date: 20120508
  Transmission Date: 20120825
  Serious: Yes (Hospitalization, Other)
  Sender: FDA-Public Use
  Company Number: PHHY2012BR040394

PATIENT
  Sex: Female
  Weight: 48 kg

DRUGS (5)
  1. BEROTEC [Concomitant]
     Indication: BRONCHITIS
     Dosage: TWICE DAILY (WHEN IT WAS NECESSARY)
  2. ATROVENT [Concomitant]
     Indication: BRONCHITIS
     Dosage: TWICE DAILY (WHEN IT WAS NECESSARY)
  3. SIMVASTATIN [Concomitant]
     Indication: ANXIETY
     Dosage: HALF TABLET AT MORNING AND HALF TABLET AT NIGHT
  4. FORMOTEROL FUMARATE [Suspect]
     Indication: BRONCHITIS
     Dosage: FORASEQ 12/400 MCG 60/60 TWICE A DAY
  5. CORTISONE ACETATE [Concomitant]
     Indication: BRONCHITIS
     Dosage: UNK UKN, UNK

REACTIONS (5)
  - VAGINAL CANCER [None]
  - INFECTION [None]
  - DYSPNOEA [None]
  - RENAL CANCER [None]
  - FATIGUE [None]
